FAERS Safety Report 25786673 (Version 1)
Quarter: 2025Q3

REPORT INFORMATION
  Report Type: Spontaneous
  Country: US (occurrence: None)
  Receive Date: 20250909
  Receipt Date: 20250909
  Transmission Date: 20251021
  Serious: No
  Sender: FDA-CTU
  Company Number: None

PATIENT
  Age: 70 Year
  Sex: Male

DRUGS (6)
  1. DUPIXENT [Suspect]
     Active Substance: DUPILUMAB
     Indication: Dermatitis atopic
     Route: 058
     Dates: start: 20250708
  2. LISINOPRIL [Concomitant]
     Active Substance: LISINOPRIL
  3. CARVEDILOL [Concomitant]
     Active Substance: CARVEDILOL
  4. ALLOPURINOL [Concomitant]
     Active Substance: ALLOPURINOL
  5. DABIGATRAN [Concomitant]
     Active Substance: DABIGATRAN
  6. ATORVASTATIN [Concomitant]
     Active Substance: ATORVASTATIN

REACTIONS (2)
  - Injection site swelling [None]
  - Injection site bruising [None]

NARRATIVE: CASE EVENT DATE: 20250909
